FAERS Safety Report 22083850 (Version 13)
Quarter: 2024Q1

REPORT INFORMATION
  Report Type: Spontaneous
  Country: CA (occurrence: CA)
  Receive Date: 20230310
  Receipt Date: 20240223
  Transmission Date: 20240409
  Serious: Yes (Death, Other)
  Sender: FDA-Public Use
  Company Number: CA-PFIZER INC-202300059047

PATIENT
  Age: 44 Year
  Sex: Male
  Weight: 96.2 kg

DRUGS (16)
  1. RUXIENCE [Suspect]
     Active Substance: RITUXIMAB-PVVR
     Indication: Rheumatoid arthritis
     Dosage: 1000 MG, DAY 1 AND DAY 15
     Route: 042
     Dates: start: 20230202
  2. RUXIENCE [Suspect]
     Active Substance: RITUXIMAB-PVVR
     Dosage: 1000 MG, DAY 1 AND DAY 15 (DAY 1 AND DAY 15 NOT COMPLETED)
     Route: 042
     Dates: start: 20230206
  3. RUXIENCE [Suspect]
     Active Substance: RITUXIMAB-PVVR
     Dosage: 1000 MG, DAY 1 AND DAY 15 NOT COMPLETED
     Route: 042
     Dates: start: 20230206, end: 20230206
  4. RUXIENCE [Suspect]
     Active Substance: RITUXIMAB-PVVR
     Dosage: 1000 MG, REINDUCTION DAY 1 AND DAY 15 (ON DAY 1)
     Route: 042
     Dates: start: 20230721, end: 20230721
  5. ARAVA [Concomitant]
     Active Substance: LEFLUNOMIDE
     Dosage: 1 DF
  6. CALCIUM [Concomitant]
     Active Substance: CALCIUM
     Dosage: 1 DF
  7. CORTISONE [Concomitant]
     Active Substance: CORTISONE
     Dosage: 1 DF
  8. HYDROXYCHLOROQUINE [Concomitant]
     Active Substance: HYDROXYCHLOROQUINE
     Dosage: 1 DF
  9. INDOMETHACIN [Concomitant]
     Active Substance: INDOMETHACIN
     Dosage: 1 DF
  10. PANTOPRAZOLE SODIUM [Concomitant]
     Active Substance: PANTOPRAZOLE SODIUM
     Dosage: 1 DF
  11. PANTOPRAZOLE [Concomitant]
     Active Substance: PANTOPRAZOLE
     Indication: Dyspepsia
     Dosage: UNK
  12. PANTOPRAZOLE [Concomitant]
     Active Substance: PANTOPRAZOLE
     Dosage: 1 DF
  13. RANITIDINE [Concomitant]
     Active Substance: RANITIDINE
     Indication: Dyspepsia
     Dosage: UNK
  14. RANITIDINE [Concomitant]
     Active Substance: RANITIDINE
     Dosage: 1 DF
  15. VITAMIN C [Concomitant]
     Active Substance: ASCORBIC ACID
     Dosage: 1 DF
     Route: 048
  16. CHOLECALCIFEROL [Concomitant]
     Active Substance: CHOLECALCIFEROL
     Dosage: 1 DF

REACTIONS (21)
  - Myocardial infarction [Fatal]
  - Cardiovascular insufficiency [Not Recovered/Not Resolved]
  - Drug dependence [Not Recovered/Not Resolved]
  - Rib fracture [Recovered/Resolved]
  - Knee arthroplasty [Not Recovered/Not Resolved]
  - Therapeutic response shortened [Unknown]
  - Fatigue [Not Recovered/Not Resolved]
  - Dyspnoea [Recovering/Resolving]
  - Nasal congestion [Not Recovered/Not Resolved]
  - Pyrexia [Not Recovered/Not Resolved]
  - Nasopharyngitis [Not Recovered/Not Resolved]
  - Cough [Not Recovered/Not Resolved]
  - Joint swelling [Not Recovered/Not Resolved]
  - Cyanosis [Not Recovered/Not Resolved]
  - Influenza [Not Recovered/Not Resolved]
  - Headache [Unknown]
  - Balance disorder [Unknown]
  - Dizziness [Unknown]
  - Throat tightness [Recovered/Resolved]
  - Arthralgia [Not Recovered/Not Resolved]
  - Incorrect dose administered [Unknown]

NARRATIVE: CASE EVENT DATE: 20230101
